FAERS Safety Report 17886971 (Version 1)
Quarter: 2020Q2

REPORT INFORMATION
  Report Type: Report from Study
  Country: None (occurrence: AU)
  Receive Date: 20200612
  Receipt Date: 20200612
  Transmission Date: 20200714
  Serious: Yes (Other)
  Sender: FDA-Public Use
  Company Number: AU-ABBVIE-20K-008-3439207-00

PATIENT
  Sex: Male

DRUGS (1)
  1. DUODOPA [Suspect]
     Active Substance: CARBIDOPA\LEVODOPA
     Indication: PARKINSON^S DISEASE
     Dosage: 16 HOUR THERAPY
     Route: 050
     Dates: start: 20150316

REACTIONS (4)
  - Transient ischaemic attack [Unknown]
  - Mobility decreased [Unknown]
  - Cerebrovascular accident [Unknown]
  - Paraesthesia [Not Recovered/Not Resolved]
